FAERS Safety Report 4633756-3 (Version None)
Quarter: 2005Q2

REPORT INFORMATION
  Report Type: 
  Country: None (occurrence: None)
  Receive Date: 20050331
  Receipt Date: 20040112
  Transmission Date: 20051028
  Serious: Yes (Other)
  Sender: FDA-Public Use
  Company Number: 200410167BCC

PATIENT
  Age: 43 Year
  Sex: Male
  Weight: 86.1834 kg

DRUGS (2)
  1. ALEVE [Suspect]
     Indication: NECK PAIN
     Dosage: 440 MG, ONCE, ORAL
     Route: 048
     Dates: start: 20040112
  2. ALBUTEROL [Concomitant]

REACTIONS (4)
  - DYSPNOEA [None]
  - ERYTHEMA [None]
  - HYPERSENSITIVITY [None]
  - SNEEZING [None]
